FAERS Safety Report 8564063-4 (Version None)
Quarter: 2012Q3

REPORT INFORMATION
  Report Type: 
  Country: None (occurrence: None)
  Receive Date: 20120803
  Receipt Date: 20120720
  Transmission Date: 20120928
  Serious: Yes (Hospitalization)
  Sender: FDA-Public Use
  Company Number: FR-RANBAXY-2012RR-58646

PATIENT
  Sex: Male

DRUGS (12)
  1. ACETAMINOPHEN W/ CODEINE [Suspect]
     Indication: PAIN
     Dosage: UNK
     Route: 048
     Dates: start: 20120628, end: 20120702
  2. KARDEGIC NOS [Suspect]
     Indication: PRODUCT USED FOR UNKNOWN INDICATION
     Dosage: 75 MG DAILY
     Route: 048
  3. TRAMADOL HCL [Suspect]
     Indication: PRODUCT USED FOR UNKNOWN INDICATION
     Route: 065
  4. OXALIPLATIN [Suspect]
     Indication: CHEMOTHERAPY
     Dosage: 130 MG, UNK
     Route: 065
     Dates: start: 20120404
  5. REPAGLINIDE [Suspect]
     Indication: TYPE 2 DIABETES MELLITUS
     Dosage: 6 MG DAILY
     Route: 048
  6. PRAVASTATIN [Suspect]
     Indication: DYSLIPIDAEMIA
     Dosage: 40 MG DAILY
     Route: 048
  7. RAMIPRIL [Suspect]
     Indication: HYPERTENSION
     Dosage: 2.5 MG, UNK
     Route: 048
     Dates: start: 20120628, end: 20120702
  8. KETOPROFENE RANBAXY 100MG COMPRIME PELLICULE [Suspect]
     Indication: SCIATICA
     Dosage: UNK
     Route: 048
     Dates: start: 20120628, end: 20120702
  9. CERTICAN [Concomitant]
     Indication: PRODUCT USED FOR UNKNOWN INDICATION
     Dosage: UNK
     Route: 065
  10. MABTHERA [Suspect]
     Indication: B-CELL LYMPHOMA
     Dosage: 750 MG
     Route: 042
     Dates: start: 20120302
  11. ACETAMINOPHEN [Suspect]
     Indication: PRODUCT USED FOR UNKNOWN INDICATION
     Route: 065
  12. CYTARABINE [Suspect]
     Indication: CHEMOTHERAPY
     Dosage: 2 G, UNK
     Dates: start: 20120404

REACTIONS (1)
  - HEPATITIS ACUTE [None]
